FAERS Safety Report 8064351-4 (Version None)
Quarter: 2011Q4

REPORT INFORMATION
  Report Type: 
  Country: None (occurrence: None)
  Receive Date: 20111221
  Receipt Date: 20110408
  Transmission Date: 20120403
  Serious: Yes (Hospitalization)
  Sender: FDA-Public Use
  Company Number: PHHY2011US31135

PATIENT
  Age: 24 Year
  Sex: Male

DRUGS (2)
  1. BLOOD TRANSFUSION, AUXILIARY PRODUCTS (NO INGREDIENTS/SUBSTANCES) [Concomitant]
  2. EXJADE [Suspect]
     Indication: SICKLE CELL ANAEMIA
     Dosage: 500 MG, BID, ORAL
     Route: 048

REACTIONS (1)
  - SICKLE CELL ANAEMIA WITH CRISIS [None]
